FAERS Safety Report 6947324-1 (Version None)
Quarter: 2010Q3

REPORT INFORMATION
  Report Type: 
  Country: None (occurrence: None)
  Receive Date: 20100827
  Receipt Date: 20090908
  Transmission Date: 20110219
  Serious: No
  Sender: FDA-Public Use
  Company Number: US-ABBOTT-09P-163-0596858-00

PATIENT
  Sex: Female
  Weight: 156.18 kg

DRUGS (7)
  1. NIASPAN [Suspect]
     Indication: BLOOD CHOLESTEROL INCREASED
     Route: 048
     Dates: start: 20090904, end: 20090906
  2. ACTOS [Concomitant]
     Indication: DIABETES MELLITUS
     Dosage: UNKNOWN
  3. PRANDIN [Concomitant]
     Indication: DIABETES MELLITUS
     Dosage: UNKNOWN
  4. JANUMET [Concomitant]
     Indication: DIABETES MELLITUS
     Dosage: UNKNOWN
  5. VERAPAMIL [Concomitant]
     Indication: HYPERTENSION
     Dosage: UNKNOWN
  6. DIOVAN [Concomitant]
     Indication: HYPERTENSION
     Dosage: UNKNOWN
  7. VYTORIN [Concomitant]
     Indication: BLOOD CHOLESTEROL INCREASED
     Dosage: UNKNOWN

REACTIONS (2)
  - ABDOMINAL PAIN [None]
  - BLOOD GLUCOSE INCREASED [None]
